FAERS Safety Report 7801363-7 (Version None)
Quarter: 2011Q4

REPORT INFORMATION
  Report Type: 
  Country: None (occurrence: None)
  Receive Date: 20111006
  Receipt Date: 20111006
  Transmission Date: 20120403
  Serious: Yes (Hospitalization)
  Sender: FDA-Public Use
  Company Number: None

PATIENT
  Age: 84 Year
  Sex: Female
  Weight: 54.2 kg

DRUGS (13)
  1. MUCINEX [Concomitant]
  2. FISH OIL [Concomitant]
  3. CARVEDILOL [Concomitant]
  4. APAP TAB [Concomitant]
  5. SOMA [Concomitant]
  6. WARFARIN SODIUM [Concomitant]
  7. LANOXIN [Suspect]
     Indication: CARDIAC FAILURE CONGESTIVE
     Dosage: 0.25MG DAILY PO CHRONIC
     Route: 048
  8. POTASSIUM CHLORIDE [Concomitant]
  9. LASIX [Concomitant]
  10. VIT D [Concomitant]
  11. SYNTHROID [Concomitant]
  12. RAMIPRIL [Concomitant]
  13. SPIRONOLACTONE [Concomitant]

REACTIONS (9)
  - HEART RATE DECREASED [None]
  - ATRIOVENTRICULAR BLOCK COMPLETE [None]
  - HYPERKALAEMIA [None]
  - TOXICITY TO VARIOUS AGENTS [None]
  - INCORRECT DOSE ADMINISTERED [None]
  - BLOOD PRESSURE SYSTOLIC INCREASED [None]
  - RENAL FAILURE [None]
  - DRUG LEVEL BELOW THERAPEUTIC [None]
  - TREATMENT NONCOMPLIANCE [None]
